FAERS Safety Report 13431046 (Version 1)
Quarter: 2017Q2

REPORT INFORMATION
  Report Type: Spontaneous
  Country: CN (occurrence: CN)
  Receive Date: 20170412
  Receipt Date: 20170412
  Transmission Date: 20170830
  Serious: Yes (Hospitalization, Other)
  Sender: FDA-Public Use
  Company Number: PHHY2017CN049810

PATIENT
  Age: 59 Year
  Sex: Male

DRUGS (1)
  1. DIOVAN [Suspect]
     Active Substance: VALSARTAN
     Indication: HYPERTENSION
     Dosage: 80 MG, QD
     Route: 048

REACTIONS (18)
  - Ventricular extrasystoles [Unknown]
  - Ischaemic cardiomyopathy [Unknown]
  - Tricuspid valve incompetence [Unknown]
  - Hypertension [Unknown]
  - Polyuria [Unknown]
  - Chest discomfort [Recovering/Resolving]
  - Electrocardiogram ST-T change [Unknown]
  - Chronic gastritis [Unknown]
  - Tachycardia [Unknown]
  - Ventricular dysfunction [Unknown]
  - Tachypnoea [Unknown]
  - Oedema peripheral [Recovered/Resolved]
  - Aortic valve incompetence [Unknown]
  - Left ventricular hypertrophy [Unknown]
  - Cardiac failure [Unknown]
  - Congestive cardiomyopathy [Unknown]
  - Mitral valve incompetence [Unknown]
  - Suffocation feeling [Unknown]

NARRATIVE: CASE EVENT DATE: 201611
